FAERS Safety Report 9487261 (Version 1)
Quarter: 2013Q3

REPORT INFORMATION
  Report Type: Spontaneous
  Country: CA (occurrence: CA)
  Receive Date: 20130829
  Receipt Date: 20130829
  Transmission Date: 20140515
  Serious: Yes (Other)
  Sender: FDA-Public Use
  Company Number: CA-ROCHE-1266401

PATIENT
  Age: 60 Year
  Sex: Female

DRUGS (4)
  1. XOLAIR [Suspect]
     Indication: OFF LABEL USE
     Route: 058
     Dates: start: 20130507
  2. ZADITEN [Concomitant]
  3. KETOTIFEN [Concomitant]
  4. PREDNISONE [Concomitant]

REACTIONS (2)
  - Mental disorder [Unknown]
  - Urticaria [Unknown]
